FAERS Safety Report 14893355 (Version 1)
Quarter: 2018Q2

REPORT INFORMATION
  Report Type: Spontaneous
  Country: US (occurrence: US)
  Receive Date: 20180514
  Receipt Date: 20180514
  Transmission Date: 20180711
  Serious: No
  Sender: FDA-Public Use
  Company Number: US-ARALEZ PHARMACEUTICALS R+D INC.-2018-ARA-001075

PATIENT
  Sex: Male

DRUGS (3)
  1. ENOXAPARIN [Concomitant]
     Active Substance: ENOXAPARIN
  2. FINASTERIDE. [Concomitant]
     Active Substance: FINASTERIDE
  3. METOPROLOL SUCCINATE. [Suspect]
     Active Substance: METOPROLOL SUCCINATE
     Indication: VASCULAR GRAFT
     Dosage: 75 OR 100 MG ONCE DAILY
     Route: 065

REACTIONS (3)
  - Heart rate abnormal [Unknown]
  - Nightmare [Unknown]
  - Somnolence [Unknown]
